FAERS Safety Report 11265153 (Version 4)
Quarter: 2015Q4

REPORT INFORMATION
  Report Type: Report from Study
  Country: CL (occurrence: CL)
  Receive Date: 20150713
  Receipt Date: 20151009
  Transmission Date: 20160304
  Serious: Yes (Other)
  Sender: FDA-Public Use
  Company Number: CL-ROCHE-1566928

PATIENT
  Age: 46 Year
  Sex: Female
  Weight: 74 kg

DRUGS (4)
  1. XELODA [Suspect]
     Active Substance: CAPECITABINE
     Dosage: 14 DAYS PER CYCLE
     Route: 048
     Dates: start: 20150226
  2. OXALIPLATIN. [Suspect]
     Active Substance: OXALIPLATIN
     Indication: COLORECTAL CANCER
     Route: 042
     Dates: start: 20150226, end: 20150807
  3. XELODA [Suspect]
     Active Substance: CAPECITABINE
     Indication: COLORECTAL CANCER
     Dosage: 14 DAYS PER CYCLE
     Route: 048
     Dates: start: 20150226, end: 20150820
  4. AMLODIPINE [Concomitant]
     Active Substance: AMLODIPINE BESYLATE
     Indication: HYPERTENSION
     Route: 048
     Dates: start: 2000, end: 201506

REACTIONS (51)
  - Skin fissures [Recovering/Resolving]
  - Onychoclasis [Unknown]
  - Haemorrhage [Recovered/Resolved]
  - Asthenia [Recovered/Resolved]
  - Burning sensation [Recovered/Resolved]
  - Faeces soft [Unknown]
  - Dizziness [Recovered/Resolved]
  - Fatigue [Recovered/Resolved]
  - Constipation [Recovered/Resolved]
  - Urine odour abnormal [Not Recovered/Not Resolved]
  - Flatulence [Not Recovered/Not Resolved]
  - Red blood cell count decreased [Unknown]
  - Blood pressure increased [Not Recovered/Not Resolved]
  - Malaise [Not Recovered/Not Resolved]
  - Palmar-plantar erythrodysaesthesia syndrome [Recovered/Resolved]
  - Inflammation [Unknown]
  - Swelling [Not Recovered/Not Resolved]
  - Gastrointestinal disorder [Unknown]
  - Weight decreased [Unknown]
  - Movement disorder [Recovered/Resolved]
  - Vaginal haemorrhage [Recovered/Resolved]
  - Skin discolouration [Not Recovered/Not Resolved]
  - Paraesthesia [Recovered/Resolved]
  - Feeling cold [Not Recovered/Not Resolved]
  - Anxiety [Recovered/Resolved]
  - Menorrhagia [Not Recovered/Not Resolved]
  - Nausea [Not Recovered/Not Resolved]
  - Feeling hot [Recovered/Resolved]
  - Skin wrinkling [Recovered/Resolved]
  - Gastrointestinal disorder [Recovered/Resolved]
  - Depressed mood [Recovered/Resolved]
  - Platelet count decreased [Recovered/Resolved]
  - Discomfort [Unknown]
  - Skin exfoliation [Recovered/Resolved]
  - Depression [Unknown]
  - Weight increased [Unknown]
  - Peripheral swelling [Unknown]
  - Headache [Recovered/Resolved]
  - Muscle spasms [Not Recovered/Not Resolved]
  - Hepatic enzyme increased [Unknown]
  - Weight increased [Not Recovered/Not Resolved]
  - Erythema [Not Recovered/Not Resolved]
  - Blood pressure increased [Recovered/Resolved]
  - Pain [Recovered/Resolved]
  - Fatigue [Not Recovered/Not Resolved]
  - Feeling cold [Unknown]
  - Dysgeusia [Recovered/Resolved]
  - Fingerprint loss [Recovered/Resolved]
  - Neuropathy peripheral [Recovered/Resolved]
  - Hypoaesthesia [Recovered/Resolved]
  - Polyp [Not Recovered/Not Resolved]

NARRATIVE: CASE EVENT DATE: 20150226
